FAERS Safety Report 21687762 (Version 1)
Quarter: 2022Q4

REPORT INFORMATION
  Report Type: Spontaneous
  Country: PL (occurrence: PL)
  Receive Date: 20221206
  Receipt Date: 20221206
  Transmission Date: 20230112
  Serious: Yes (Other)
  Sender: FDA-Public Use
  Company Number: None

PATIENT
  Age: 53 Year
  Sex: Female
  Weight: 86 kg

DRUGS (10)
  1. ATROVENT [Suspect]
     Active Substance: IPRATROPIUM BROMIDE
     Indication: Bronchitis
     Dosage: 3X2
     Route: 055
     Dates: start: 20180420, end: 20180426
  2. ACETYLCYSTEINE [Suspect]
     Active Substance: ACETYLCYSTEINE
     Indication: Bronchitis
     Route: 055
     Dates: start: 20180413, end: 20180426
  3. CLARITHROMYCIN [Suspect]
     Active Substance: CLARITHROMYCIN
     Indication: Bronchitis
     Route: 048
     Dates: start: 20180420, end: 20180421
  4. Nonpres 25 MG [Concomitant]
     Indication: Cardiac failure
     Route: 048
     Dates: start: 20170410
  5. IVABRADINE [Concomitant]
     Active Substance: IVABRADINE
     Indication: Cardiac failure
     Dosage: 2X1.5
     Route: 048
     Dates: start: 20170606
  6. Toramide 10 MG [Concomitant]
     Indication: Cardiac failure
     Dosage: 1-0-0.5
     Route: 048
     Dates: start: 20170410
  7. TRITACE 2,5 [Concomitant]
     Indication: Cardiac failure
     Route: 048
     Dates: start: 20170410
  8. Avedol 12,5 MG [Concomitant]
     Indication: Cardiac failure
     Route: 048
     Dates: start: 20170410
  9. Tulip 40 MG [Concomitant]
     Indication: Cardiac failure
     Dosage: 1X0.5
     Route: 048
     Dates: start: 20170410
  10. Fenardin 267 MG [Concomitant]
     Indication: Cardiac failure
     Route: 048
     Dates: start: 20170410

REACTIONS (2)
  - Hallucination, visual [Recovered/Resolved]
  - Face oedema [Recovered/Resolved]

NARRATIVE: CASE EVENT DATE: 20180421
